FAERS Safety Report 6672803-4 (Version None)
Quarter: 2010Q2

REPORT INFORMATION
  Report Type: 
  Country: None (occurrence: None)
  Receive Date: 20100406
  Receipt Date: 20100329
  Transmission Date: 20101027
  Serious: No
  Sender: FDA-Public Use
  Company Number: 550190

PATIENT
  Age: 58 Year
  Sex: Male
  Weight: 91 kg

DRUGS (1)
  1. HYDROMORPHONE HCL [Suspect]
     Indication: PAIN MANAGEMENT
     Dosage: 0.8MG, ONCE, INTRAVENOUS
     Route: 042
     Dates: start: 20100306, end: 20100306

REACTIONS (2)
  - PULSE ABNORMAL [None]
  - UNRESPONSIVE TO STIMULI [None]
